FAERS Safety Report 17403951 (Version 1)
Quarter: 2020Q1

REPORT INFORMATION
  Report Type: Spontaneous
  Country: US (occurrence: US)
  Receive Date: 20200211
  Receipt Date: 20200211
  Transmission Date: 20200409
  Serious: No
  Sender: FDA-Public Use
  Company Number: US-ICU MEDICAL, INC.-ICU2019US00121

PATIENT

DRUGS (2)
  1. 0.9% SODIUM CHLORIDE INJECTION USP (1000 ML) [Suspect]
     Active Substance: SODIUM CHLORIDE
     Indication: IRRIGATION THERAPY
     Dosage: UNK
     Dates: start: 20181208
  2. 0.9% SODIUM CHLORIDE INJECTION USP (1000 ML) [Suspect]
     Active Substance: SODIUM CHLORIDE
     Indication: DENTAL IMPLANTATION

REACTIONS (2)
  - Incorrect route of product administration [Unknown]
  - No adverse event [Unknown]

NARRATIVE: CASE EVENT DATE: 20181208
